FAERS Safety Report 7113967-8 (Version None)
Quarter: 2010Q4

REPORT INFORMATION
  Report Type: 
  Country: None (occurrence: None)
  Receive Date: 20101119
  Receipt Date: 20101116
  Transmission Date: 20110411
  Serious: Yes (Death, Life-Threatening, Disabling)
  Sender: FDA-Public Use
  Company Number: A0889142A

PATIENT
  Age: 63 Year
  Sex: Male

DRUGS (5)
  1. PAXIL CR [Suspect]
     Dosage: 37.5MG UNKNOWN
     Route: 048
     Dates: start: 20070308
  2. METFORMIN HCL [Concomitant]
     Dosage: 500MG TWICE PER DAY
     Route: 048
     Dates: end: 20101001
  3. SEROQUEL [Concomitant]
     Dosage: 400MG AT NIGHT
     Route: 048
     Dates: start: 20050601, end: 20101001
  4. SEROQUEL [Concomitant]
     Dosage: 200MG TWICE PER DAY
     Route: 048
     Dates: start: 20050301, end: 20101001
  5. XANAX [Concomitant]
     Dosage: 1MG THREE TIMES PER DAY
     Route: 048
     Dates: start: 20060201, end: 20101001

REACTIONS (1)
  - MYOCARDIAL INFARCTION [None]
